FAERS Safety Report 4728328-6 (Version None)
Quarter: 2005Q3

REPORT INFORMATION
  Report Type: 
  Country: None (occurrence: None)
  Receive Date: 20050727
  Receipt Date: 20050721
  Transmission Date: 20060218
  Serious: Yes (Hospitalization, Other)
  Sender: FDA-Public Use
  Company Number: USA-2005-0020742

PATIENT
  Age: 52 Year
  Sex: Female
  Weight: 52 kg

DRUGS (2)
  1. SENNOSIDES (SENNOSIDE A+B) [Suspect]
     Indication: CONSTIPATION
     Dosage: 70 GRAM, DAILY, ORAL
     Route: 048
  2. VITAMINS NOS (VITAMINS NOS) [Concomitant]

REACTIONS (37)
  - AMINOACIDURIA [None]
  - ANOREXIA [None]
  - ASTHENIA [None]
  - BLOOD CADMIUM INCREASED [None]
  - BLOOD CHLORIDE DECREASED [None]
  - BLOOD GLUCOSE DECREASED [None]
  - BLOOD PHOSPHORUS INCREASED [None]
  - BLOOD PRESSURE DECREASED [None]
  - BODY TEMPERATURE DECREASED [None]
  - COAGULATION FACTOR V LEVEL DECREASED [None]
  - COAGULOPATHY [None]
  - CONFUSIONAL STATE [None]
  - CYANOSIS [None]
  - DRUG ABUSER [None]
  - DRUG DEPENDENCE [None]
  - DRUG INEFFECTIVE [None]
  - EXPOSURE TO TOXIC AGENT [None]
  - GLUCOSE URINE [None]
  - HEART RATE INCREASED [None]
  - HEPATIC ENCEPHALOPATHY [None]
  - HEPATIC FAILURE [None]
  - HEPATOTOXICITY [None]
  - HYPERNATRAEMIA [None]
  - INTERNATIONAL NORMALISED RATIO INCREASED [None]
  - MENTAL IMPAIRMENT [None]
  - METABOLIC ACIDOSIS [None]
  - METABOLIC DISORDER [None]
  - PERIPHERAL COLDNESS [None]
  - PNEUMONIA STAPHYLOCOCCAL [None]
  - POLYURIA [None]
  - PROTEIN URINE [None]
  - RENAL IMPAIRMENT [None]
  - RENAL TUBULAR ACIDOSIS [None]
  - RESPIRATORY FAILURE [None]
  - SELF-MEDICATION [None]
  - STUPOR [None]
  - URINE MERCURY ABNORMAL [None]
